FAERS Safety Report 8850017 (Version 1)
Quarter: 2012Q4

REPORT INFORMATION
  Report Type: 
  Country: FR (occurrence: FR)
  Receive Date: 20121019
  Receipt Date: 20121019
  Transmission Date: 20130627
  Serious: Yes (Other)
  Sender: FDA-Public Use
  Company Number: FR-VERTEX PHARMACEUTICAL INC.-2012-023252

PATIENT
  Age: 40 Year
  Sex: Male
  Weight: 78 kg

DRUGS (6)
  1. INCIVO [Suspect]
     Indication: HEPATITIS C
     Dosage: Dosage Form: Tablet
     Route: 048
     Dates: start: 20120210, end: 20120504
  2. PEGASYS [Suspect]
     Indication: HEPATITIS C
     Dosage: 180 ?g, qw
     Dates: start: 20120210
  3. RIBAVIRINE [Concomitant]
     Indication: HEPATITIS C
     Dosage: 400 mg, tid
     Dates: start: 20120210
  4. APROVEL [Concomitant]
     Indication: PROPHYLAXIS
     Dosage: 75 mg, bid
     Dates: start: 20100323
  5. ALPRAZOLAM [Concomitant]
     Indication: SLEEP DISORDER
     Dosage: 0.5 mg, bid
     Dates: start: 20120629
  6. EFFERALGAN [Concomitant]
     Indication: INFLUENZA LIKE ILLNESS
     Dosage: 1 g, tid
     Dates: start: 20120504

REACTIONS (1)
  - Neutropenia [Recovered/Resolved]
